FAERS Safety Report 6145540-2 (Version None)
Quarter: 2009Q2

REPORT INFORMATION
  Report Type: 
  Country: None (occurrence: None)
  Receive Date: 20090402
  Receipt Date: 20090320
  Transmission Date: 20091009
  Serious: Yes (Hospitalization, Other)
  Sender: FDA-Public Use
  Company Number: ENTC2009-0096

PATIENT
  Age: 63 Year
  Sex: Male

DRUGS (13)
  1. STALEVO 100 [Suspect]
  2. INIPOMP [Suspect]
     Indication: PROPHYLAXIS
     Dosage: ORAL
     Route: 048
     Dates: start: 20080515, end: 20080529
  3. VANCOMYCIN HCL [Suspect]
     Indication: ENDOCARDITIS
     Dosage: INTRAVENOUS (NOT OTHERWISE SPECIFIED)
     Route: 042
     Dates: start: 20071227, end: 20081229
  4. CARDENSIEL [Suspect]
     Indication: CARDIAC FAILURE
     Dosage: 12.5 MG ORAL
     Route: 048
     Dates: start: 20080506, end: 20080529
  5. RIFADIN [Suspect]
     Indication: ENDOCARDITIS
     Dosage: 3 DF, BID ORAL
     Route: 048
     Dates: start: 20080515, end: 20080527
  6. TRIATEC [Suspect]
     Indication: CARDIAC FAILURE
     Dosage: 5 MG ORAL
     Route: 048
     Dates: start: 20080517, end: 20080529
  7. TAHOR [Suspect]
     Indication: HYPERCHOLESTEROLAEMIA
     Dosage: 1 DF ORAL
     Route: 048
     Dates: end: 20080529
  8. ATARAX [Suspect]
     Indication: ANXIETY
     Dosage: 1 DF ORAL
     Route: 048
     Dates: start: 20080310, end: 20080529
  9. LEXOMIL [Suspect]
     Indication: ANXIETY
     Dosage: 0.5 DF, BID ORAL
     Route: 048
     Dates: start: 20080310, end: 20080529
  10. SINEMET [Suspect]
  11. KARDEGIC [Suspect]
     Dates: start: 20080515, end: 20080529
  12. LASIX [Suspect]
     Dates: start: 20080515, end: 20080529
  13. GENTAMICIN [Concomitant]

REACTIONS (9)
  - ANAEMIA [None]
  - AORTIC VALVE INCOMPETENCE [None]
  - CARDIAC VALVE ABSCESS [None]
  - CYTOLYTIC HEPATITIS [None]
  - DRUG RASH WITH EOSINOPHILIA AND SYSTEMIC SYMPTOMS [None]
  - ENDOCARDITIS [None]
  - HEPATITIS CHOLESTATIC [None]
  - PURULENCE [None]
  - RENAL FAILURE ACUTE [None]
